FAERS Safety Report 5881131-6 (Version None)
Quarter: 2008Q3

REPORT INFORMATION
  Report Type: 
  Country: None (occurrence: None)
  Receive Date: 20080912
  Receipt Date: 20080619
  Transmission Date: 20090109
  Serious: No
  Sender: FDA-Public Use
  Company Number: US-ABBOTT-08P-163-0458754-00

PATIENT
  Sex: Female
  Weight: 71.732 kg

DRUGS (4)
  1. HUMIRA [Suspect]
     Indication: PSORIASIS
     Route: 058
     Dates: start: 20080501
  2. DICLOFENAC SODIUM [Concomitant]
     Indication: ARTHRITIS
     Route: 048
  3. ESTROGENS CONJUGATED [Concomitant]
     Indication: HYSTERECTOMY
     Route: 048
     Dates: start: 19920101
  4. FLUOXETINE [Concomitant]
     Indication: DRUG USE FOR UNKNOWN INDICATION
     Route: 048

REACTIONS (10)
  - APHONIA [None]
  - ARTHRALGIA [None]
  - COUGH [None]
  - HEADACHE [None]
  - HYPERHIDROSIS [None]
  - MYALGIA [None]
  - NAUSEA [None]
  - PAIN [None]
  - PYREXIA [None]
  - UPPER RESPIRATORY TRACT INFECTION [None]
